FAERS Safety Report 23175276 (Version 2)
Quarter: 2023Q4

REPORT INFORMATION
  Report Type: Spontaneous
  Country: US (occurrence: US)
  Receive Date: 20231113
  Receipt Date: 20231129
  Transmission Date: 20240110
  Serious: Yes (Death, Hospitalization, Other)
  Sender: FDA-Public Use
  Company Number: US-BAXTER-2023BAX035042

PATIENT
  Age: 30 Year
  Sex: Male

DRUGS (2)
  1. EXTRANEAL [Suspect]
     Active Substance: CALCIUM CHLORIDE\ICODEXTRIN\MAGNESIUM CHLORIDE\SODIUM CHLORIDE\SODIUM LACTATE
     Route: 033
  2. DIANEAL [Suspect]
     Active Substance: CALCIUM CHLORIDE\DEXTROSE\MAGNESIUM CHLORIDE\SODIUM CHLORIDE\SODIUM LACTATE
     Indication: End stage renal disease
     Dosage: UNK VIA CYLER
     Route: 033
     Dates: start: 2021

REACTIONS (10)
  - Death [Fatal]
  - Sepsis [Unknown]
  - Respiratory failure [Unknown]
  - Peritonitis [Recovered/Resolved]
  - Peritonitis bacterial [Not Recovered/Not Resolved]
  - Abdominal pain [Recovering/Resolving]
  - Peritoneal cloudy effluent [Unknown]
  - Peritoneal dialysis complication [Recovered/Resolved]
  - Peritoneal dialysis complication [Unknown]
  - Constipation [Recovering/Resolving]

NARRATIVE: CASE EVENT DATE: 20231026
